FAERS Safety Report 16940685 (Version 1)
Quarter: 2019Q4

REPORT INFORMATION
  Report Type: Spontaneous
  Country: US (occurrence: US)
  Receive Date: 20191021
  Receipt Date: 20191021
  Transmission Date: 20200122
  Serious: Yes (Other)
  Sender: FDA-Public Use
  Company Number: US-PFIZER INC-2019454031

PATIENT
  Age: 63 Year
  Sex: Male

DRUGS (6)
  1. LEVOTHYROXINE. [Concomitant]
     Active Substance: LEVOTHYROXINE
     Indication: THYROID DISORDER
     Dosage: UNK
     Dates: start: 201012
  2. VIAGRA [Suspect]
     Active Substance: SILDENAFIL CITRATE
     Indication: ERECTILE DYSFUNCTION
     Dosage: 20-30 TOTAL AS SAMPLE
     Dates: start: 1996, end: 2006
  3. CIALIS [Suspect]
     Active Substance: TADALAFIL
     Indication: ERECTILE DYSFUNCTION
     Dosage: 30-40 TOTAL AS SAMPLE
     Dates: start: 1996, end: 2006
  4. KETOCONAZOLE. [Concomitant]
     Active Substance: KETOCONAZOLE
     Indication: DRY SKIN
     Dosage: UNK
     Dates: start: 2014
  5. VIAGRA [Suspect]
     Active Substance: SILDENAFIL CITRATE
     Dosage: 100 MG, FIVE TIMES A MONTH
     Dates: start: 20140219, end: 20140409
  6. CIALIS [Suspect]
     Active Substance: TADALAFIL
     Dosage: 20 MG, AT LEAST TEN TIMES A MONTH
     Dates: start: 20060223, end: 20160611

REACTIONS (6)
  - Depression [Unknown]
  - Hypoaesthesia [Unknown]
  - Malignant melanoma [Unknown]
  - Pain [Unknown]
  - Alcoholism [Unknown]
  - Deafness unilateral [Not Recovered/Not Resolved]

NARRATIVE: CASE EVENT DATE: 2010
